FAERS Safety Report 8991806 (Version 3)
Quarter: 2013Q1

REPORT INFORMATION
  Report Type: Spontaneous
  Country: US (occurrence: US)
  Receive Date: 20121231
  Receipt Date: 20130108
  Transmission Date: 20140127
  Serious: Yes (Hospitalization)
  Sender: FDA-Public Use
  Company Number: US-JNJFOC-20121211209

PATIENT
  Age: 58 Year
  Sex: Female

DRUGS (15)
  1. TYLENOL [Suspect]
     Indication: PAIN
     Dosage: 325MG AS NEEDED NOT MORE THAN 5 TABLETS /DAY
     Route: 048
  2. DULOXETINE HYDROCHLORIDE [Suspect]
     Indication: PAIN
     Route: 065
  3. DULOXETINE HYDROCHLORIDE [Suspect]
     Indication: PAIN
     Dosage: OVER 1 YEAR
     Route: 065
  4. DULOXETINE HYDROCHLORIDE [Suspect]
     Indication: DEPRESSION
     Route: 065
  5. DULOXETINE HYDROCHLORIDE [Suspect]
     Indication: DEPRESSION
     Dosage: OVER 1 YEAR
     Route: 065
  6. DULOXETINE HYDROCHLORIDE [Suspect]
     Indication: ANXIETY
     Dosage: OVER 1 YEAR
     Route: 065
  7. DULOXETINE HYDROCHLORIDE [Suspect]
     Indication: ANXIETY
     Route: 065
  8. ATORVASTATIN [Suspect]
     Indication: PRODUCT USED FOR UNKNOWN INDICATION
     Route: 065
  9. CAFFEINE [Suspect]
     Indication: PRODUCT USED FOR UNKNOWN INDICATION
     Route: 065
  10. ASPIRIN [Concomitant]
     Route: 065
  11. VALIUM [Concomitant]
     Route: 065
  12. TRAZODONE [Concomitant]
     Route: 065
  13. SUBOXONE [Concomitant]
     Route: 060
  14. ADVAIR [Concomitant]
     Route: 065
  15. VENTOLIN [Concomitant]
     Indication: ASTHMA
     Route: 055

REACTIONS (2)
  - Acute hepatic failure [Unknown]
  - Renal failure acute [Recovering/Resolving]
